FAERS Safety Report 18952678 (Version 2)
Quarter: 2025Q1

REPORT INFORMATION
  Report Type: Spontaneous
  Country: US (occurrence: US)
  Receive Date: 20210301
  Receipt Date: 20250304
  Transmission Date: 20250409
  Serious: Yes (Other)
  Sender: ROCHE
  Company Number: US-ROCHE-2778271

PATIENT
  Age: 5 Year
  Sex: Male

DRUGS (4)
  1. HEMLIBRA [Suspect]
     Active Substance: EMICIZUMAB-KXWH
     Indication: Factor VIII deficiency
     Dosage: STRENGTH-30MG/ML
     Route: 058
     Dates: start: 20190919
  2. HEMLIBRA [Suspect]
     Active Substance: EMICIZUMAB-KXWH
     Dosage: STRENGTH-60MG/0.4ML
     Route: 058
     Dates: start: 201912
  3. XYNTHA SOLOF KIT [Concomitant]
  4. aminocaproic acid oral solution [Concomitant]

REACTIONS (3)
  - Haemorrhage [Recovered/Resolved]
  - Tooth socket haemorrhage [Unknown]
  - Head injury [Unknown]

NARRATIVE: CASE EVENT DATE: 20250203
